FAERS Safety Report 8520622-6 (Version None)
Quarter: 2012Q3

REPORT INFORMATION
  Report Type: 
  Country: None (occurrence: None)
  Receive Date: 20120713
  Receipt Date: 20120713
  Transmission Date: 20120928
  Serious: Yes (Life-Threatening, Other)
  Sender: FDA-Public Use
  Company Number: None

PATIENT
  Sex: Female
  Weight: 90.7194 kg

DRUGS (1)
  1. OXYBUTYNIN [Suspect]
     Indication: HYPERTONIC BLADDER
     Dosage: 10MG ER DAILY ONCE DAILY
     Dates: start: 20120613

REACTIONS (6)
  - MUSCULAR WEAKNESS [None]
  - PAIN [None]
  - OEDEMA PERIPHERAL [None]
  - HEADACHE [None]
  - NAUSEA [None]
  - MUSCLE SPASMS [None]
